FAERS Safety Report 19091302 (Version 2)
Quarter: 2022Q1

REPORT INFORMATION
  Report Type: Other
  Country: KR (occurrence: None)
  Receive Date: 20210405
  Receipt Date: 20220216
  Transmission Date: 20220423
  Serious: Yes (Disabling, Other)
  Sender: FDA-Public Use
  Company Number: KR-ROCHE-2724162

PATIENT
  Age: 51 Year
  Sex: Female
  Weight: 53.4 kg

DRUGS (4)
  1. PRALSETINIB [Suspect]
     Active Substance: PRALSETINIB
     Indication: Non-small cell lung cancer
     Dosage: MOST RECENT DOSE OF PRALSETINIB RECEIVED ON 13/SEP/2020
     Route: 048
     Dates: start: 20200616, end: 20200620
  2. PRALSETINIB [Suspect]
     Active Substance: PRALSETINIB
     Route: 048
     Dates: start: 20200721, end: 20200913
  3. PRALSETINIB [Suspect]
     Active Substance: PRALSETINIB
     Route: 048
     Dates: start: 20201015
  4. LEVOTHYROXINE [Concomitant]
     Active Substance: LEVOTHYROXINE
     Indication: Hypothyroidism
     Dates: start: 20191119

REACTIONS (6)
  - Peritoneal tuberculosis [Recovered/Resolved]
  - Neutropenia [Recovering/Resolving]
  - Herpes zoster [Recovered/Resolved]
  - Stomatitis [Recovered/Resolved]
  - Constipation [Recovered/Resolved]
  - Pyrexia [Recovered/Resolved]

NARRATIVE: CASE EVENT DATE: 20200620
